FAERS Safety Report 5777789-2 (Version None)
Quarter: 2008Q2

REPORT INFORMATION
  Report Type: 
  Country: None (occurrence: None)
  Receive Date: 20080618
  Receipt Date: 20080606
  Transmission Date: 20081010
  Serious: Yes (Other)
  Sender: FDA-Public Use
  Company Number: FI-PFIZER INC-2008049258

PATIENT
  Sex: Female

DRUGS (4)
  1. LYRICA [Suspect]
     Indication: PAIN
     Route: 048
  2. ADALAT [Concomitant]
  3. XYZAL [Concomitant]
  4. NORITREN [Concomitant]

REACTIONS (2)
  - EYELID OEDEMA [None]
  - URTICARIA PAPULAR [None]
